FAERS Safety Report 20434073 (Version 1)
Quarter: 2022Q1

REPORT INFORMATION
  Report Type: Spontaneous
  Country: None (occurrence: US)
  Receive Date: 20220205
  Receipt Date: 20220205
  Transmission Date: 20220423
  Serious: No
  Sender: FDA-Public Use
  Company Number: US-Ascend Therapeutics US, LLC-2124640

PATIENT
  Age: 58 Year
  Sex: Female

DRUGS (3)
  1. ESTROGEL [Suspect]
     Active Substance: ESTRADIOL
     Indication: Menopause
     Route: 061
     Dates: start: 2014
  2. ESTROGEL [Suspect]
     Active Substance: ESTRADIOL
  3. ESTROGEL [Suspect]
     Active Substance: ESTRADIOL
     Route: 061
     Dates: start: 2014

REACTIONS (2)
  - Product dispensing issue [None]
  - Product dose omission issue [None]

NARRATIVE: CASE EVENT DATE: 20211012
